FAERS Safety Report 14274321 (Version 1)
Quarter: 2017Q4

REPORT INFORMATION
  Report Type: Spontaneous
  Country: BR (occurrence: BR)
  Receive Date: 20171211
  Receipt Date: 20171211
  Transmission Date: 20180321
  Serious: Yes (Death, Other)
  Sender: FDA-Public Use
  Company Number: US-OTSUKA-KJ20043208

PATIENT
  Age: 40 Year
  Sex: Male
  Weight: 90 kg

DRUGS (8)
  1. BIPERIDENE? [Concomitant]
     Route: 065
  2. HALOPERIDOL. [Concomitant]
     Active Substance: HALOPERIDOL
     Route: 065
  3. ABILIFY [Suspect]
     Active Substance: ARIPIPRAZOLE
     Indication: SCHIZOPHRENIA
     Dosage: 15 MG, UNK
     Route: 048
     Dates: start: 20041205, end: 20041205
  4. LEVOMEPROMAZINE [Suspect]
     Active Substance: LEVOMEPROMAZINE
     Route: 065
  5. HALOPERIDOL. [Concomitant]
     Active Substance: HALOPERIDOL
     Dosage: 15 MG, QD
  6. CHLORPROMAZINE? [Concomitant]
     Route: 065
  7. CHLORPROMAZINE. [Concomitant]
     Active Substance: CHLORPROMAZINE
     Dosage: 200 MG, QD
  8. BIPERIDENE [Concomitant]
     Active Substance: BIPERIDEN
     Dosage: 2 MG, QD

REACTIONS (2)
  - Myocardial infarction [Fatal]
  - Dyspnoea [Fatal]

NARRATIVE: CASE EVENT DATE: 20041205
